FAERS Safety Report 7706069-0 (Version None)
Quarter: 2011Q3

REPORT INFORMATION
  Report Type: 
  Country: None (occurrence: None)
  Receive Date: 20110824
  Receipt Date: 20110819
  Transmission Date: 20111222
  Serious: Yes (Other)
  Sender: FDA-Public Use
  Company Number: US-PFIZER INC-2011192556

PATIENT
  Sex: Female
  Weight: 77 kg

DRUGS (2)
  1. LYRICA [Suspect]
     Indication: FIBROMYALGIA
     Dosage: 75 MG, 2X/DAY
     Route: 048
     Dates: start: 20080101
  2. LISINOPRIL [Concomitant]
     Indication: HYPERTENSION
     Dosage: 40/25 MG DAILY

REACTIONS (1)
  - CONVULSION [None]
